FAERS Safety Report 19501509 (Version 1)
Quarter: 2021Q3

REPORT INFORMATION
  Report Type: Spontaneous
  Country: DE (occurrence: DE)
  Receive Date: 20210707
  Receipt Date: 20210707
  Transmission Date: 20211014
  Serious: Yes (Hospitalization)
  Sender: FDA-Public Use
  Company Number: DE-TEVA-2021-DE-1929466

PATIENT
  Age: 85 Year
  Sex: Female
  Weight: 59 kg

DRUGS (6)
  1. MIRTAZAPIN [Suspect]
     Active Substance: MIRTAZAPINE
     Dosage: 15 MILLIGRAM DAILY;  0?0?1?0
     Route: 048
  2. NALOXONE W/OXYCODONE [Suspect]
     Active Substance: NALOXONE HYDROCHLORIDE\OXYCODONE HYDROCHLORIDE
     Dosage: 10 | 20 MG, 1?0.5?1?1, SUSTAINED?RELEASE TABLETS
     Route: 048
  3. LEVOTHYROXIN?NATRIUM [Concomitant]
     Active Substance: LEVOTHYROXINE SODIUM
     Dosage: 125 MICROGRAM DAILY; 1?0?0?0
     Route: 048
  4. PANTOPRAZOL [Concomitant]
     Active Substance: PANTOPRAZOLE SODIUM
     Dosage: 40 MILLIGRAM DAILY; 1?0?0?0, SUSTAINED?RELEASE TABLETS
     Route: 048
  5. MORPHIN [Concomitant]
     Active Substance: MORPHINE
     Dosage: 3 MG, REQUIREMENT, DROPS
     Route: 048
  6. PREGABALIN. [Concomitant]
     Active Substance: PREGABALIN
     Dosage: 100 MILLIGRAM DAILY; 0?0?1?0
     Route: 048

REACTIONS (4)
  - Medication error [Unknown]
  - Tinnitus [Unknown]
  - Dizziness [Unknown]
  - Fall [Unknown]
